FAERS Safety Report 12113848 (Version 1)
Quarter: 2016Q1

REPORT INFORMATION
  Report Type: Spontaneous
  Country: US (occurrence: None)
  Receive Date: 20160223
  Receipt Date: 20160223
  Transmission Date: 20160526
  Serious: No
  Sender: FDA-Public Use
  Company Number: None

PATIENT
  Age: 8 Year
  Sex: Female
  Weight: 25.86 kg

DRUGS (1)
  1. DAYTRANA [Suspect]
     Active Substance: METHYLPHENIDATE
     Indication: ATTENTION DEFICIT/HYPERACTIVITY DISORDER
     Dosage: PATCH IN MORNING APPLIED TO A SURFACE, USUALLY THE SKIN
     Dates: start: 20151117, end: 20160122

REACTIONS (3)
  - Hypophagia [None]
  - Headache [None]
  - Mood swings [None]

NARRATIVE: CASE EVENT DATE: 20160104
